FAERS Safety Report 7341932-4 (Version None)
Quarter: 2011Q1

REPORT INFORMATION
  Report Type: 
  Country: None (occurrence: None)
  Receive Date: 20110309
  Receipt Date: 20110304
  Transmission Date: 20110831
  Serious: Yes (Hospitalization)
  Sender: FDA-Public Use
  Company Number: DE-ABBOTT-11P-062-0709573-00

PATIENT
  Age: 12 Year
  Sex: Male

DRUGS (5)
  1. HUMIRA [Suspect]
     Indication: JUVENILE ARTHRITIS
     Route: 058
  2. METHOTREXATE [Concomitant]
     Indication: JUVENILE ARTHRITIS
  3. DICLOFENAC [Concomitant]
     Indication: JUVENILE ARTHRITIS
  4. FOLSAN [Concomitant]
     Indication: PRODUCT USED FOR UNKNOWN INDICATION
  5. ZOFRAN [Concomitant]
     Indication: JUVENILE ARTHRITIS

REACTIONS (3)
  - BONE MARROW OEDEMA [None]
  - BONE PAIN [None]
  - PSORIASIS [None]
